FAERS Safety Report 4877914-1 (Version None)
Quarter: 2005Q4

REPORT INFORMATION
  Report Type: 
  Country: None (occurrence: None)
  Receive Date: 20051206
  Receipt Date: 20050909
  Transmission Date: 20060501
  Serious: No
  Sender: FDA-Public Use
  Company Number: USA0509107712

PATIENT
  Age: 66 Year
  Sex: Male

DRUGS (2)
  1. CYMBALTA [Suspect]
     Indication: AGGRESSION
     Dosage: 60 MG DAY
     Dates: start: 20040501, end: 20050908
  2. PROZAC [Concomitant]

REACTIONS (3)
  - COMPULSIONS [None]
  - HYPERSOMNIA [None]
  - SOMNOLENCE [None]
